FAERS Safety Report 8536844 (Version 2)
Quarter: 2013Q1

REPORT INFORMATION
  Report Type: Spontaneous
  Country: FR (occurrence: None)
  Receive Date: 20120420
  Receipt Date: 20121105
  Transmission Date: 20140127
  Serious: Yes (Hospitalization)
  Sender: FDA-Public Use
  Company Number: 2012-001436

PATIENT
  Age: 58 Year
  Sex: Female

DRUGS (18)
  1. ACTONEL [Suspect]
     Indication: PAIN
     Dosage: UNKNOWN, ORAL
     Route: 048
     Dates: start: 2010, end: 20120315
  2. ENBREL [Suspect]
     Indication: RHEUMATOID ARTHRITIS
     Dosage: 50 MG ONCE WEEKLY, SUBCUTANEOUS
     Route: 058
     Dates: start: 20111018, end: 20120303
  3. METOJECT (METHOTREXATE SODIUM) [Suspect]
     Indication: RHEUMATOID ARTHRITIS
     Route: 058
     Dates: start: 19970101, end: 20120315
  4. RITUXAN [Suspect]
     Indication: RHEUMATOID ARTHRITIS
     Dates: start: 20091001, end: 201110
  5. LYRICA [Suspect]
     Indication: PAIN
     Route: 048
     Dates: start: 2010, end: 20120315
  6. NEXIUM [Suspect]
     Dates: start: 2010, end: 20120315
  7. AMITRIPTYLINE HYDROCHLORIDE [Suspect]
     Indication: DEPRESSION
     Route: 048
     Dates: end: 20120303
  8. ESCITALOPRAM OXALATE [Concomitant]
  9. VALSARTAN [Concomitant]
  10. FLODIL /00646501/ (FELODIPINE) [Concomitant]
  11. XANAX [Concomitant]
  12. ZOLPIDEM TARTRATE [Concomitant]
  13. SPECIAFOLDINE (FOLIC ACID) [Concomitant]
  14. ACETAMINOPHEN [Concomitant]
  15. SULFARLEM (ANETHOLE TRITHIONE) [Concomitant]
  16. VOLTARENE /00372302/ (DICLOFENAC SODIUM) [Concomitant]
  17. PREDNISONE [Concomitant]
  18. ACUPAN [Concomitant]

REACTIONS (8)
  - Agranulocytosis [None]
  - Asthenia [None]
  - Oedema peripheral [None]
  - Chills [None]
  - Headache [None]
  - Neutropenia [None]
  - Depression [None]
  - Suicide attempt [None]
